FAERS Safety Report 20460615 (Version 1)
Quarter: 2022Q1

REPORT INFORMATION
  Report Type: Report from Study
  Country: US (occurrence: US)
  Receive Date: 20220211
  Receipt Date: 20220211
  Transmission Date: 20220424
  Serious: Yes (Hospitalization)
  Sender: FDA-Public Use
  Company Number: US-JAZZ-2021-US-015638

PATIENT
  Age: 5 Year
  Sex: Female
  Weight: 18.6 kg

DRUGS (10)
  1. ASPARAGINASE ERWINIA CHRYSANTHEMI [Suspect]
     Active Substance: ASPARAGINASE ERWINIA CHRYSANTHEMI
     Indication: Acute lymphocytic leukaemia
     Dosage: 25 MILLIGRAM/SQ. METER, 3XWEEKLY PER 2W COURSE
     Route: 042
     Dates: start: 20210222, end: 20210305
  2. ASPARAGINASE ERWINIA CHRYSANTHEMI [Suspect]
     Active Substance: ASPARAGINASE ERWINIA CHRYSANTHEMI
     Dosage: 50 MILLIGRAM/SQ. METER, 3XWEEKLY PER 2W COURSE
     Route: 042
     Dates: end: 20210820
  3. VINCRISTINE [Concomitant]
     Active Substance: VINCRISTINE
     Dosage: 1.5 MILLIGRAM/SQ. METER, SINGLE
     Route: 042
     Dates: start: 20210816, end: 20210816
  4. ONDANSETRON [Concomitant]
     Active Substance: ONDANSETRON
     Dosage: 4 MILLIGRAM, SINGLE
     Route: 042
     Dates: start: 20210816, end: 20210816
  5. METHOTREXATE [Concomitant]
     Active Substance: METHOTREXATE
     Dosage: 12 MILLIGRAM, SINGLE
     Route: 037
     Dates: start: 20210816, end: 20210816
  6. DOXORUBICIN [Concomitant]
     Active Substance: DOXORUBICIN
     Dosage: 25 MILLIGRAM/SQ. METER, SINGLE INJ
     Dates: start: 20210816, end: 20210816
  7. LIDOCAINE PRILOCAINE BIOGARAN [Concomitant]
     Dosage: 1 APPLICATION
     Route: 061
     Dates: start: 20210818, end: 20210818
  8. HYDROXYZINE [Concomitant]
     Active Substance: HYDROXYZINE HYDROCHLORIDE
     Dosage: 18 MILLIGRAM, PRN Q4H INJ
     Dates: start: 20210820, end: 20210820
  9. LORAZEPAM [Concomitant]
     Active Substance: LORAZEPAM
     Dosage: 0.4 MILLIGRAM, SINGLE INJ
     Dates: start: 20210820, end: 20210820
  10. FOSAPREPITANT [Concomitant]
     Active Substance: FOSAPREPITANT
     Dosage: 73 MILLIGRAM, SINGLE INJ
     Dates: start: 20210818, end: 20210818

REACTIONS (1)
  - Dehydration [Recovered/Resolved]

NARRATIVE: CASE EVENT DATE: 20210820
